FAERS Safety Report 5085310-X (Version None)
Quarter: 2006Q3

REPORT INFORMATION
  Report Type: 
  Country: None (occurrence: None)
  Receive Date: 20060817
  Receipt Date: 20060803
  Transmission Date: 20061208
  Serious: Yes (Hospitalization)
  Sender: FDA-Public Use
  Company Number: 2005161722

PATIENT
  Age: 73 Year
  Sex: Female

DRUGS (2)
  1. BEXTRA [Suspect]
     Indication: PAIN
  2. VIOXX [Suspect]
     Indication: ILL-DEFINED DISORDER

REACTIONS (3)
  - CARDIOVASCULAR DISORDER [None]
  - CEREBRAL THROMBOSIS [None]
  - EMBOLISM [None]
